FAERS Safety Report 8007431-1 (Version None)
Quarter: 2011Q4

REPORT INFORMATION
  Report Type: 
  Country: None (occurrence: None)
  Receive Date: 20111227
  Receipt Date: 20111219
  Transmission Date: 20120403
  Serious: Yes (Life-Threatening, Hospitalization)
  Sender: FDA-Public Use
  Company Number: US-BAYER-2011-032047

PATIENT
  Age: 53 Year
  Sex: Female
  Weight: 93.878 kg

DRUGS (33)
  1. KLONOPIN [Concomitant]
     Indication: ANXIETY
     Dosage: 0.5 MG, UNK
     Route: 048
     Dates: start: 20060101
  2. POTASSIUM CHLORIDE [Concomitant]
     Indication: OEDEMA
     Dosage: UNK
     Route: 048
     Dates: start: 20060101
  3. PHENERGAN [Concomitant]
     Indication: NAUSEA
     Dosage: 25 MG, UNK
     Route: 048
     Dates: start: 20100502
  4. ROCEPHIN [Concomitant]
     Dosage: 1 UNK, UNK
     Route: 042
     Dates: start: 20100502
  5. OXAPROZIN [Concomitant]
     Dosage: 600 MG, UNK
     Route: 048
  6. NASACORT [Concomitant]
     Dosage: 55 UNK, UNK
     Route: 045
  7. LORTAB [Concomitant]
     Indication: PAIN
     Dosage: UNK
     Route: 048
     Dates: start: 20100502
  8. PROAIR HFA [Concomitant]
     Indication: WHEEZING
  9. CYCLOBENZAPRINE [Concomitant]
     Indication: MUSCLE SPASMS
     Dosage: 10 MG, UNK
     Route: 048
  10. CYMBALTA [Concomitant]
     Indication: DEPRESSION
     Dosage: 60 MG, UNK
     Route: 048
     Dates: start: 20060101
  11. LASIX [Concomitant]
     Indication: OEDEMA
     Dosage: 20 MG, UNK
     Route: 048
     Dates: start: 20060101
  12. TORADOL [Concomitant]
     Dosage: 30 MG, UNK
     Route: 042
     Dates: start: 20100502
  13. CYCLOBENZAPRINE [Concomitant]
     Indication: PAIN
  14. ASPIRIN [Concomitant]
     Dosage: 81 MG, UNK
     Route: 048
     Dates: end: 20100521
  15. PROAIR HFA [Concomitant]
     Indication: DYSPNOEA
  16. ULTRAM [Concomitant]
     Indication: PAIN
     Dosage: 50 MG, UNK
     Route: 048
  17. CIMETIDINE [Concomitant]
     Dosage: 200 MG, UNK
     Route: 048
  18. CRANBERRY [Concomitant]
     Route: 048
  19. ACETAMINOPHEN [Concomitant]
     Indication: HEADACHE
     Dosage: 500 MG, UNK
     Route: 048
  20. PHENERGAN [Concomitant]
     Indication: VOMITING
  21. MAALOX PLUS [Concomitant]
     Dosage: 30 ML, UNK
     Route: 048
     Dates: start: 20100502
  22. LIDOCAINE [Concomitant]
     Dosage: 5 ML, UNK
     Route: 048
     Dates: start: 20100502
  23. CIPROFLOXACIN [Concomitant]
     Dosage: 500 MG, UNK
     Route: 048
     Dates: start: 20100502
  24. PROAIR HFA [Concomitant]
     Indication: COUGH
     Dosage: 90 UNK, UNK
  25. BENADRYL [Concomitant]
     Indication: PRURITUS
     Dosage: 25 MG, UNK
     Route: 048
  26. GLIPIZIDE [Concomitant]
     Indication: DIABETES MELLITUS
     Dosage: 5 MG, UNK
     Route: 048
     Dates: start: 20030101
  27. ZOFRAN [Concomitant]
     Dosage: 4 MG, UNK
     Route: 042
     Dates: start: 20100502
  28. CORTISONE ACETATE [Concomitant]
  29. YAZ [Suspect]
     Indication: CONTRACEPTION
     Dosage: UNK
     Route: 048
     Dates: start: 20100401, end: 20100501
  30. MULTI-VITAMIN [Concomitant]
     Route: 048
  31. PRILOSEC [Concomitant]
     Dosage: 20 MG, UNK
     Route: 048
  32. METFORMIN [Concomitant]
     Indication: DIABETES MELLITUS
     Dosage: 500 MG, UNK
     Route: 048
     Dates: start: 20030101
  33. HYDROCHLOROTHIAZIDE [Concomitant]
     Dosage: 25 MG, UNK
     Route: 048
     Dates: end: 20100518

REACTIONS (5)
  - DEEP VEIN THROMBOSIS [None]
  - INJURY [None]
  - PULMONARY EMBOLISM [None]
  - PAIN [None]
  - EMOTIONAL DISTRESS [None]
